FAERS Safety Report 6669035-2 (Version None)
Quarter: 2010Q2

REPORT INFORMATION
  Report Type: 
  Country: None (occurrence: None)
  Receive Date: 20100406
  Receipt Date: 20100326
  Transmission Date: 20101027
  Serious: Yes (Other)
  Sender: FDA-Public Use
  Company Number: US-SANOFI-AVENTIS-2010SA011736

PATIENT
  Age: 62 Year
  Sex: Male
  Weight: 81.65 kg

DRUGS (2)
  1. LANTUS [Suspect]
     Dosage: DOSE:23 UNIT(S)
     Route: 058
  2. CARDIAC THERAPY [Concomitant]

REACTIONS (4)
  - BRAIN INJURY [None]
  - CARDIAC OPERATION [None]
  - HYPERGLYCAEMIA [None]
  - IMPLANTABLE DEFIBRILLATOR INSERTION [None]
